FAERS Safety Report 12257580 (Version 1)
Quarter: 2016Q2

REPORT INFORMATION
  Report Type: Spontaneous
  Country: BR (occurrence: BR)
  Receive Date: 20160412
  Receipt Date: 20160412
  Transmission Date: 20160815
  Serious: Yes (Other)
  Sender: FDA-Public Use
  Company Number: BR-BAYER-2015-279894

PATIENT
  Age: 24 Year
  Sex: Female

DRUGS (1)
  1. MIRENA [Suspect]
     Active Substance: LEVONORGESTREL
     Indication: CONTRACEPTION
     Dosage: 20 MCG/24HR, CONT
     Route: 015
     Dates: start: 20140221

REACTIONS (7)
  - Pregnancy with contraceptive device [Recovered/Resolved]
  - Procedural pain [None]
  - Hypomenorrhoea [None]
  - Haemorrhage in pregnancy [None]
  - Nausea [Recovered/Resolved]
  - Drug ineffective [None]
  - Placenta praevia [None]

NARRATIVE: CASE EVENT DATE: 20140221
